FAERS Safety Report 13064330 (Version 3)
Quarter: 2017Q1

REPORT INFORMATION
  Report Type: Spontaneous
  Country: US (occurrence: US)
  Receive Date: 20161227
  Receipt Date: 20170330
  Transmission Date: 20170428
  Serious: Yes (Other)
  Sender: FDA-Public Use
  Company Number: US-ASTELLAS-2016US045003

PATIENT
  Age: 75 Year
  Sex: Male

DRUGS (6)
  1. MYCOPHENOLIC ACID. [Concomitant]
     Active Substance: MYCOPHENOLIC ACID
     Indication: PRODUCT USED FOR UNKNOWN INDICATION
     Route: 048
     Dates: start: 20150805
  2. MYFORTIC [Concomitant]
     Active Substance: MYCOPHENOLATE SODIUM
     Indication: PRODUCT USED FOR UNKNOWN INDICATION
     Route: 048
     Dates: start: 20150728
  3. PROGRAF [Suspect]
     Active Substance: TACROLIMUS\TACROLIMUS ANHYDROUS
     Indication: TRANSPLANT
     Route: 048
     Dates: start: 20150805
  4. PREDNISONE. [Concomitant]
     Active Substance: PREDNISONE
     Indication: PRODUCT USED FOR UNKNOWN INDICATION
     Route: 048
     Dates: start: 20150826
  5. PREDNISONE. [Concomitant]
     Active Substance: PREDNISONE
     Route: 048
     Dates: start: 201508
  6. MYFORTIC [Concomitant]
     Active Substance: MYCOPHENOLATE SODIUM
     Route: 048
     Dates: start: 20150805

REACTIONS (12)
  - Muscle spasms [Unknown]
  - Thrombosis [Unknown]
  - Escherichia infection [Unknown]
  - Feeling abnormal [Unknown]
  - Spinal instability [Unknown]
  - Tremor [Unknown]
  - Fall [Unknown]
  - Seizure [Unknown]
  - Intervertebral discitis [Unknown]
  - Accident [Unknown]
  - Spinal epidural haematoma [Unknown]
  - Gait disturbance [Unknown]

NARRATIVE: CASE EVENT DATE: 201607
